FAERS Safety Report 8230493-3 (Version None)
Quarter: 2012Q1

REPORT INFORMATION
  Report Type: 
  Country: None (occurrence: None)
  Receive Date: 20120323
  Receipt Date: 20120313
  Transmission Date: 20120608
  Serious: Yes (Hospitalization)
  Sender: FDA-Public Use
  Company Number: ES-PERRIGO-12ES002151

PATIENT
  Age: 32 Year
  Sex: Male

DRUGS (2)
  1. PARACETACOD [Concomitant]
     Indication: INFLUENZA
     Dosage: 1-2 CAPSULES PER DAY
     Route: 065
  2. IBUPROFEN [Suspect]
     Indication: INFLUENZA
     Dosage: 600-1200 MG, DAILY
     Route: 065

REACTIONS (6)
  - TOXIC SKIN ERUPTION [None]
  - HEPATITIS CHOLESTATIC [None]
  - URINE COLOUR ABNORMAL [None]
  - PRURITUS [None]
  - RASH PAPULAR [None]
  - JAUNDICE [None]
